FAERS Safety Report 25841967 (Version 1)
Quarter: 2025Q3

REPORT INFORMATION
  Report Type: Spontaneous
  Country: GB (occurrence: GB)
  Receive Date: 20250924
  Receipt Date: 20250924
  Transmission Date: 20251021
  Serious: Yes (Other)
  Sender: GRIFOLS
  Company Number: None

PATIENT
  Age: 11 Year
  Sex: Male
  Weight: 40 kg

DRUGS (1)
  1. XEMBIFY [Suspect]
     Active Substance: HUMAN IMMUNOGLOBULIN G
     Indication: Bruton^s agammaglobulinaemia
     Dosage: 8 GRAM, Q.2WK.
     Route: 058
     Dates: start: 20250616

REACTIONS (7)
  - Infusion site swelling [Unknown]
  - Infusion site scab [Unknown]
  - Infusion site erythema [Unknown]
  - Infusion site ulcer [Unknown]
  - Infusion site necrosis [Unknown]
  - Blister [Recovering/Resolving]
  - Medication error [Unknown]

NARRATIVE: CASE EVENT DATE: 20250816
